FAERS Safety Report 6279254-5 (Version None)
Quarter: 2009Q3

REPORT INFORMATION
  Report Type: 
  Country: None (occurrence: None)
  Receive Date: 20090717
  Receipt Date: 20090717
  Transmission Date: 20100115
  Serious: Yes (Other)
  Sender: FDA-Public Use
  Company Number: None

PATIENT
  Age: 36 Year
  Sex: Female
  Weight: 58.9676 kg

DRUGS (1)
  1. RAPTIVA [Suspect]
     Indication: PSORIASIS
     Dosage: WEEKLY
     Dates: start: 20050501, end: 20090601

REACTIONS (3)
  - BREAST CYST [None]
  - BREAST NEOPLASM [None]
  - NEOPLASM PROGRESSION [None]
